FAERS Safety Report 6177562-X (Version None)
Quarter: 2009Q2

REPORT INFORMATION
  Report Type: 
  Country: None (occurrence: None)
  Receive Date: 20090504
  Receipt Date: 20090427
  Transmission Date: 20091009
  Serious: Yes (Death, Other)
  Sender: FDA-Public Use
  Company Number: US-ELI_LILLY_AND_COMPANY-US200903002981

PATIENT
  Age: 67 Year
  Sex: Female

DRUGS (1)
  1. HUMULIN 70/30 [Suspect]
     Indication: DIABETES MELLITUS
     Dates: start: 19940101

REACTIONS (10)
  - BLINDNESS [None]
  - BLOOD GLUCOSE INCREASED [None]
  - BLOOD PRESSURE DECREASED [None]
  - CAPILLARY DISORDER [None]
  - DEATH [None]
  - HYPERTENSION [None]
  - INCORRECT DOSE ADMINISTERED [None]
  - RETINAL DETACHMENT [None]
  - RETINAL SCAR [None]
  - VISUAL ACUITY REDUCED [None]
